FAERS Safety Report 18367254 (Version 1)
Quarter: 2020Q4

REPORT INFORMATION
  Report Type: Spontaneous
  Country: FR (occurrence: FR)
  Receive Date: 20201009
  Receipt Date: 20201009
  Transmission Date: 20210114
  Serious: Yes (Other)
  Sender: FDA-Public Use
  Company Number: FR-PFIZER INC-2020386792

PATIENT
  Sex: Female
  Weight: 64 kg

DRUGS (7)
  1. EFFEXOR [Suspect]
     Active Substance: VENLAFAXINE HYDROCHLORIDE
     Indication: CATAPLEXY
     Dosage: 75 MG, DAILY
  2. XYREM [Suspect]
     Active Substance: SODIUM OXYBATE
     Dosage: 4.5 G, 2X/DAY
     Route: 048
     Dates: start: 202006, end: 202009
  3. XYREM [Suspect]
     Active Substance: SODIUM OXYBATE
     Dosage: 4 G, 2X/DAY
     Route: 048
     Dates: start: 202009, end: 2020
  4. CONCERTA [Concomitant]
     Active Substance: METHYLPHENIDATE HYDROCHLORIDE
     Dosage: UNK
  5. RITALIN [Concomitant]
     Active Substance: METHYLPHENIDATE HYDROCHLORIDE
     Indication: SOMNOLENCE
     Dosage: 40 MG, 1X/DAY
     Route: 048
     Dates: start: 20170911
  6. XYREM [Suspect]
     Active Substance: SODIUM OXYBATE
     Indication: CATAPLEXY
     Dosage: 3.75 G, 2X/DAY
     Route: 048
     Dates: start: 20180617
  7. XYREM [Suspect]
     Active Substance: SODIUM OXYBATE
     Indication: NARCOLEPSY
     Dosage: 6 G, 1X/DAY
     Route: 048
     Dates: start: 20171016

REACTIONS (8)
  - Somnolence [Recovered/Resolved]
  - Nausea [Recovered/Resolved]
  - Libido disorder [Unknown]
  - Vomiting [Recovered/Resolved]
  - Parasomnia [Not Recovered/Not Resolved]
  - Sleep apnoea syndrome [Not Recovered/Not Resolved]
  - Enuresis [Recovered/Resolved]
  - Dyssomnia [Unknown]

NARRATIVE: CASE EVENT DATE: 20180717
